FAERS Safety Report 6874620-9 (Version None)
Quarter: 2010Q2

REPORT INFORMATION
  Report Type: 
  Country: None (occurrence: None)
  Receive Date: 20100610
  Receipt Date: 20100422
  Transmission Date: 20101027
  Serious: Yes (Hospitalization)
  Sender: FDA-Public Use
  Company Number: 2010SP023136

PATIENT
  Age: 53 Year
  Sex: Female

DRUGS (2)
  1. SAPHRIS [Suspect]
     Indication: MAJOR DEPRESSION
     Dosage: 5 MG;BID;SL ; 15 MG;QD;SL
     Dates: end: 20100412
  2. SAPHRIS [Suspect]
     Indication: MAJOR DEPRESSION
     Dosage: 5 MG;BID;SL ; 15 MG;QD;SL
     Dates: start: 20100210

REACTIONS (3)
  - BODY DYSMORPHIC DISORDER [None]
  - OFF LABEL USE [None]
  - PSYCHOTIC DISORDER [None]
